FAERS Safety Report 7421002-7 (Version None)
Quarter: 2011Q2

REPORT INFORMATION
  Report Type: 
  Country: None (occurrence: None)
  Receive Date: 20110418
  Receipt Date: 20110406
  Transmission Date: 20111010
  Serious: Yes (Other)
  Sender: FDA-Public Use
  Company Number: PHHY2011GB30526

PATIENT
  Age: 29 Year
  Sex: Female

DRUGS (2)
  1. PAROXETINE HCL [Suspect]
     Dosage: 40 MG/DAY
  2. OLANZAPINE [Suspect]
     Dosage: 10 MG, UNK

REACTIONS (5)
  - UTERINE RUPTURE [None]
  - PUERPERAL PYREXIA [None]
  - PREMATURE RUPTURE OF MEMBRANES [None]
  - CAESAREAN SECTION [None]
  - DRUG EXPOSURE DURING PREGNANCY [None]
